FAERS Safety Report 6138511-3 (Version None)
Quarter: 2009Q1

REPORT INFORMATION
  Report Type: 
  Country: None (occurrence: None)
  Receive Date: 20090331
  Receipt Date: 20090324
  Transmission Date: 20090719
  Serious: Yes (Hospitalization)
  Sender: FDA-Public Use
  Company Number: US-ELI_LILLY_AND_COMPANY-US200812002350

PATIENT
  Sex: Male
  Weight: 162.45 kg

DRUGS (12)
  1. BYETTA [Suspect]
     Indication: TYPE 2 DIABETES MELLITUS
     Dosage: 5 UG, 2/D
     Route: 058
     Dates: start: 20060301
  2. BYETTA [Suspect]
     Dosage: 10 UG, 2/D
     Route: 058
     Dates: end: 20080723
  3. METFORMIN HCL [Concomitant]
     Dosage: 500 MG, 2/D
     Route: 048
  4. METFORMIN HCL [Concomitant]
     Dosage: 1000 MG, 2/D
     Route: 065
  5. AVANDAMET [Concomitant]
     Dosage: UNK, 2/D
     Route: 065
  6. JANUVIA [Concomitant]
     Dosage: 100 MG, DAILY (1/D)
     Route: 065
  7. JANUMET [Concomitant]
     Dosage: UNK, 2/D
     Route: 065
  8. LISINOPRIL [Concomitant]
     Dosage: UNK, UNKNOWN
     Route: 065
  9. HYDROCHLORZIDE [Concomitant]
     Dosage: UNK, UNKNOWN
     Route: 065
  10. AVANDIA [Concomitant]
     Dosage: UNK, UNKNOWN
     Route: 065
  11. AVAPRO [Concomitant]
     Dosage: UNK, UNKNOWN
     Route: 065
  12. PANTOPRAZOLE SODIUM [Concomitant]
     Dosage: UNK, UNKNOWN
     Route: 065

REACTIONS (4)
  - ABDOMINAL DISCOMFORT [None]
  - OSTEOARTHRITIS [None]
  - PANCREATITIS [None]
  - WEIGHT DECREASED [None]
